FAERS Safety Report 7622194-7 (Version None)
Quarter: 2011Q3

REPORT INFORMATION
  Report Type: 
  Country: None (occurrence: None)
  Receive Date: 20110720
  Receipt Date: 20110517
  Transmission Date: 20111222
  Serious: Yes (Hospitalization, Other)
  Sender: FDA-Public Use
  Company Number: US-BAYER-2011-026268

PATIENT
  Age: 29 Year
  Sex: Female
  Weight: 86 kg

DRUGS (5)
  1. VICODIN [Concomitant]
  2. IBUPROFEN (ADVIL) [Concomitant]
  3. YAZ [Suspect]
     Indication: ORAL CONTRACEPTION
     Dosage: UNK
     Dates: start: 20080601, end: 20081201
  4. PHENERGAN HCL [Concomitant]
  5. ETHINYLESTRAD W/FERROUS FUM/NORETHISTER ACET [Concomitant]
     Dosage: UNK UNK, CONT

REACTIONS (2)
  - EMOTIONAL DISTRESS [None]
  - PELVIC VENOUS THROMBOSIS [None]
